FAERS Safety Report 17423052 (Version 1)
Quarter: 2020Q1

REPORT INFORMATION
  Report Type: Spontaneous
  Country: US (occurrence: US)
  Receive Date: 20200130
  Receipt Date: 20200130
  Transmission Date: 20200409
  Serious: Yes (Life-Threatening, Hospitalization)
  Sender: FDA-Public Use
  Company Number: None

PATIENT
  Age: 63 Year
  Sex: Female

DRUGS (3)
  1. ASPIRIN (ASPIRIN 81MG TAB, EC) [Suspect]
     Active Substance: ASPIRIN
     Indication: ISCHAEMIC HEART DISEASE PROPHYLAXIS
     Dates: start: 20181210, end: 20191106
  2. DICLOFENAC (DICLOFENAC NA 50MG TAB, EC) [Suspect]
     Active Substance: DICLOFENAC
     Indication: PAIN
     Route: 048
     Dates: start: 20190401, end: 20191106
  3. ASPIRIN (ASPIRIN 81MG TAB, EC) [Suspect]
     Active Substance: ASPIRIN
     Indication: CARDIOVASCULAR EVENT PROPHYLAXIS
     Dates: start: 20181210, end: 20191106

REACTIONS (9)
  - Asthenia [None]
  - Fatigue [None]
  - Gastric haemorrhage [None]
  - Blood loss anaemia [None]
  - Nausea [None]
  - Dizziness [None]
  - Melaena [None]
  - Gastrointestinal haemorrhage [None]
  - Fall [None]

NARRATIVE: CASE EVENT DATE: 20191105
